FAERS Safety Report 9820927 (Version 2)
Quarter: 2014Q1

REPORT INFORMATION
  Report Type: Spontaneous
  Country: US (occurrence: US)
  Receive Date: 20140116
  Receipt Date: 20140207
  Transmission Date: 20141002
  Serious: Yes (Hospitalization)
  Sender: FDA-Public Use
  Company Number: US-B.I. PHARMACEUTICALS,INC./RIDGEFIELD-2014-BI-01098BP

PATIENT
  Age: 78 Year
  Sex: Male
  Weight: 99.79 kg

DRUGS (10)
  1. PRADAXA [Suspect]
     Indication: ATRIAL FIBRILLATION
     Dates: start: 20101230, end: 20110817
  2. PRADAXA [Suspect]
     Indication: CEREBROVASCULAR ACCIDENT PROPHYLAXIS
  3. SOTALOL [Concomitant]
     Indication: ATRIAL FIBRILLATION
  4. PROTON PUMP INHIBITOR [Concomitant]
     Indication: GASTROOESOPHAGEAL REFLUX DISEASE
  5. CARDIZEM [Concomitant]
  6. DYAZIDE [Concomitant]
  7. PRILOSEC [Concomitant]
  8. CARDURA [Concomitant]
  9. NEURONTIN [Concomitant]
  10. VICODIN [Concomitant]

REACTIONS (3)
  - Lower gastrointestinal haemorrhage [Unknown]
  - Anaemia [Unknown]
  - Coagulopathy [Unknown]
